FAERS Safety Report 21794854 (Version 1)
Quarter: 2022Q4

REPORT INFORMATION
  Report Type: Spontaneous
  Country: US (occurrence: US)
  Receive Date: 20221229
  Receipt Date: 20221229
  Transmission Date: 20230113
  Serious: No
  Sender: FDA-Public Use
  Company Number: US-PFIZER INC-202201398308

PATIENT
  Age: 70 Year
  Sex: Female

DRUGS (2)
  1. IBRANCE [Suspect]
     Active Substance: PALBOCICLIB
     Dosage: UNK
  2. FASLODEX [Suspect]
     Active Substance: FULVESTRANT
     Dosage: UNK

REACTIONS (9)
  - Neoplasm progression [Unknown]
  - Rash [Unknown]
  - Nail disorder [Unknown]
  - Dry skin [Unknown]
  - Oropharyngeal discomfort [Unknown]
  - Attention deficit hyperactivity disorder [Unknown]
  - Hypersensitivity [Unknown]
  - Symptom recurrence [Unknown]
  - Vitamin B12 abnormal [Unknown]
